FAERS Safety Report 19463124 (Version 1)
Quarter: 2021Q2

REPORT INFORMATION
  Report Type: Spontaneous
  Country: JP (occurrence: JP)
  Receive Date: 20210625
  Receipt Date: 20210625
  Transmission Date: 20210717
  Serious: Yes (Other)
  Sender: FDA-Public Use
  Company Number: JP-009507513-2106JPN001806J

PATIENT
  Sex: Male

DRUGS (1)
  1. CUBICIN [Suspect]
     Active Substance: DAPTOMYCIN
     Dosage: UNK
     Route: 041
     Dates: start: 202105, end: 202105

REACTIONS (3)
  - Eosinophilic pneumonia [Recovering/Resolving]
  - Pneumonia aspiration [Recovering/Resolving]
  - Aspiration [Unknown]

NARRATIVE: CASE EVENT DATE: 202105
